FAERS Safety Report 9645516 (Version 1)
Quarter: 2013Q4

REPORT INFORMATION
  Report Type: Spontaneous
  Country: US (occurrence: US)
  Receive Date: 20131025
  Receipt Date: 20131025
  Transmission Date: 20140711
  Serious: No
  Sender: FDA-Public Use
  Company Number: US-TEVA-440645USA

PATIENT
  Age: 24 Year
  Sex: Female
  Weight: 37.68 kg

DRUGS (3)
  1. PLAN B ONE-STEP [Suspect]
     Indication: POST COITAL CONTRACEPTION
     Dosage: 1.5 MILLIGRAM DAILY;
     Route: 048
     Dates: start: 20131015, end: 20131015
  2. NEXT CHOICE ONE DOSE [Suspect]
     Indication: POST COITAL CONTRACEPTION
     Dates: start: 20131015, end: 20131015
  3. IRON [Concomitant]
     Indication: IRON DEFICIENCY
     Route: 048

REACTIONS (3)
  - Muscle spasms [Recovered/Resolved]
  - Abdominal distension [Not Recovered/Not Resolved]
  - Menstruation irregular [Not Recovered/Not Resolved]
